FAERS Safety Report 9279050 (Version 2)
Quarter: 2013Q2

REPORT INFORMATION
  Report Type: Spontaneous
  Country: FR (occurrence: FR)
  Receive Date: 20130508
  Receipt Date: 20130515
  Transmission Date: 20140414
  Serious: Yes (Hospitalization)
  Sender: FDA-Public Use
  Company Number: FR-BAYER-2013-055136

PATIENT
  Age: 82 Year
  Sex: Male

DRUGS (7)
  1. NEXAVAR [Suspect]
     Indication: HEPATOCELLULAR CARCINOMA
     Dosage: DAILY DOSE 800 MG
     Route: 048
     Dates: start: 20130315, end: 20130328
  2. PARACETAMOL [Concomitant]
  3. ACEBUTOLOL [Concomitant]
  4. RAMIPRIL [Concomitant]
  5. LOXEN [Concomitant]
  6. ALFUZOSIN [Concomitant]
  7. LACRIFLUID [Concomitant]

REACTIONS (1)
  - Ischaemic stroke [Recovering/Resolving]
